FAERS Safety Report 7649053-8 (Version None)
Quarter: 2011Q3

REPORT INFORMATION
  Report Type: 
  Country: None (occurrence: None)
  Receive Date: 20110726
  Receipt Date: 20110713
  Transmission Date: 20111222
  Serious: Yes (Hospitalization)
  Sender: FDA-Public Use
  Company Number: FK201101379

PATIENT
  Age: 75 Year
  Sex: Male

DRUGS (7)
  1. MOVICOL (POLYETHYL. GLYC. W/ POTAS. CHLOR./SOD. BICARB.) [Concomitant]
  2. ASPIRIN [Concomitant]
  3. CARBOPLATIN [Suspect]
     Indication: BLADDER TRANSITIONAL CELL CARCINOMA
     Dosage: 330 MG, INTRAVENOUS (NOT OTHERWISE SPECIFIED)
     Route: 042
     Dates: start: 20110119, end: 20110119
  4. GEMCITABINE [Suspect]
     Indication: BLADDER TRANSITIONAL CELL CARCINOMA
     Dosage: 2000 MG, INTRAVENOUS (NOT OTHERWISE SPECIFIED)
     Route: 042
     Dates: start: 20110119, end: 20110126
  5. PREDNISOLONE [Concomitant]
  6. FINASTERIDE (FINASTERIDE) (FINASTERIDE) [Concomitant]
  7. TAMSULOSIN (TAMSULOSIN) (TAMSULOSIN) [Concomitant]

REACTIONS (3)
  - ORTHOSTATIC HYPOTENSION [None]
  - DIZZINESS [None]
  - ADRENAL INSUFFICIENCY [None]
